FAERS Safety Report 6221127-8 (Version None)
Quarter: 2009Q2

REPORT INFORMATION
  Report Type: 
  Country: None (occurrence: None)
  Receive Date: 20090610
  Receipt Date: 20090604
  Transmission Date: 20091009
  Serious: Yes (Death, Hospitalization)
  Sender: FDA-Public Use
  Company Number: B0578123A

PATIENT
  Sex: Female

DRUGS (6)
  1. DILATREND [Suspect]
     Indication: CORONARY ARTERY DISEASE
     Dosage: 12.5MG PER DAY
     Route: 048
     Dates: start: 20030101, end: 20090326
  2. ASPIRIN [Concomitant]
  3. LASIX [Concomitant]
  4. TRIATEC [Concomitant]
  5. KANRENOL [Concomitant]
  6. COUMADIN [Concomitant]

REACTIONS (3)
  - BRADYCARDIA [None]
  - CARDIAC FAILURE CONGESTIVE [None]
  - HYPOTENSION [None]
